FAERS Safety Report 9688904 (Version 1)
Quarter: 2013Q4

REPORT INFORMATION
  Report Type: Spontaneous
  Country: FR (occurrence: None)
  Receive Date: 20131112
  Receipt Date: 20131112
  Transmission Date: 20140711
  Serious: Yes (Hospitalization)
  Sender: FDA-Public Use
  Company Number: 2013000298

PATIENT
  Age: 66 Year
  Sex: Female

DRUGS (4)
  1. ACEON [Suspect]
     Indication: PRODUCT USED FOR UNKNOWN INDICATION
     Route: 048
     Dates: end: 201210
  2. BRISTOPEN [Suspect]
     Indication: ARTHRITIS BACTERIAL
     Route: 048
     Dates: start: 200210, end: 200210
  3. GENTALLINE [Suspect]
     Indication: ARTHRITIS BACTERIAL
     Route: 048
     Dates: start: 200210, end: 200210
  4. LASILIX (FUROSEMIDE) [Suspect]
     Indication: PRODUCT USED FOR UNKNOWN INDICATION
     Route: 048
     Dates: end: 200210

REACTIONS (9)
  - Seronegative arthritis [None]
  - Renal failure acute [None]
  - Pain [None]
  - Pyrexia [None]
  - Inflammation [None]
  - Lung infection [None]
  - Loss of consciousness [None]
  - Blood pressure decreased [None]
  - Rash [None]
